FAERS Safety Report 6415888-2 (Version None)
Quarter: 2009Q4

REPORT INFORMATION
  Report Type: 
  Country: None (occurrence: None)
  Receive Date: 20091027
  Receipt Date: 20091021
  Transmission Date: 20100525
  Serious: Yes (Hospitalization)
  Sender: FDA-Public Use
  Company Number: US-JNJFOC-20091007360

PATIENT
  Sex: Male
  Weight: 86.18 kg

DRUGS (3)
  1. FLEXERIL [Suspect]
     Indication: PAIN
  2. DEMEROL [Interacting]
     Indication: PAIN
  3. AZILECT [Interacting]
     Indication: PARKINSON'S DISEASE
     Dosage: 1.5 YEARS
     Route: 048

REACTIONS (2)
  - DRUG INTERACTION [None]
  - MUSCLE SPASMS [None]
